FAERS Safety Report 16596007 (Version 5)
Quarter: 2019Q3

REPORT INFORMATION
  Report Type: Spontaneous
  Country: FR (occurrence: FR)
  Receive Date: 20190719
  Receipt Date: 20190921
  Transmission Date: 20191004
  Serious: Yes (Hospitalization, Other)
  Sender: FDA-Public Use
  Company Number: FR-AUROBINDO-AUR-APL-2019-041553

PATIENT
  Age: 59 Year
  Sex: Female
  Weight: 66 kg

DRUGS (30)
  1. LASILIX [Suspect]
     Active Substance: FUROSEMIDE
     Indication: HYPERTROPHIC CARDIOMYOPATHY
     Dosage: 40 MILLIGRAM, ONCE A DAY
     Route: 048
     Dates: start: 2008, end: 20190526
  2. ADRENALINE AGUETTANT [Suspect]
     Active Substance: EPINEPHRINE
     Indication: CIRCULATORY COLLAPSE
     Dosage: 0.5 MICROGRAM/KILOGRAM, EVERY 1 MINUTE
     Route: 042
     Dates: start: 20190527, end: 20190528
  3. BACTRIM [Suspect]
     Active Substance: SULFAMETHOXAZOLE\TRIMETHOPRIM
     Indication: INFECTION PROPHYLAXIS
     Dosage: 1 DOSAGE FORM, ONCE A DAY, 1 LE SOIR
     Route: 048
     Dates: start: 20190529
  4. CELLCEPT [Suspect]
     Active Substance: MYCOPHENOLATE MOFETIL\MYCOPHENOLATE MOFETIL HYDROCHLORIDE
     Indication: PROPHYLAXIS AGAINST TRANSPLANT REJECTION
     Dosage: 3000 MILLIGRAM, ONCE A DAY
     Route: 048
     Dates: start: 20190529, end: 20190608
  5. PRAVASTATIN ARROW TABLETS 40MG [Suspect]
     Active Substance: PRAVASTATIN
     Indication: HYPERCHOLESTEROLAEMIA
     Dosage: 40 MILLIGRAM, ONCE A DAY, 0-0-1
     Route: 048
     Dates: start: 20190527, end: 20190625
  6. ZYLORIC [Suspect]
     Active Substance: ALLOPURINOL
     Indication: HYPERURICAEMIA
     Dosage: 100 MILLIGRAM, ONCE A DAY, 0-0-1
     Route: 048
     Dates: start: 201812, end: 20190526
  7. ZYLORIC [Suspect]
     Active Substance: ALLOPURINOL
     Dosage: 1 DOSAGE FORM, ONCE A DAY
     Route: 065
     Dates: start: 201812, end: 20190526
  8. ALDACTONE [Suspect]
     Active Substance: SPIRONOLACTONE
     Indication: HYPERTROPHIC CARDIOMYOPATHY
     Dosage: 25 MILLIGRAM, ONCE A DAY
     Route: 048
     Dates: start: 201902, end: 20190526
  9. STILNOX [Suspect]
     Active Substance: ZOLPIDEM TARTRATE
     Indication: SLEEP DISORDER
     Dosage: 10 MILLIGRAM
     Route: 048
     Dates: start: 20190520, end: 20190526
  10. REVATIO [Suspect]
     Active Substance: SILDENAFIL CITRATE
     Indication: PULMONARY ARTERIAL HYPERTENSION
     Dosage: 60 MILLIGRAM, ONCE A DAY
     Route: 048
     Dates: start: 20190527, end: 20190605
  11. PROPOFOL. [Suspect]
     Active Substance: PROPOFOL
     Indication: SEDATION
     Dosage: 100 MILLIGRAM, EVERY HOUR, 100 ? 200 MG/H
     Route: 042
     Dates: start: 20190527, end: 20190530
  12. NORADRENALINE MYLAN [Suspect]
     Active Substance: NOREPINEPHRINE\NOREPINEPHRINE BITARTRATE
     Indication: CIRCULATORY COLLAPSE
     Dosage: 1 MICROGRAM/KILOGRAM, EVERY 1 MINUTE
     Route: 042
     Dates: start: 20190527, end: 20190612
  13. CORDARONE [Suspect]
     Active Substance: AMIODARONE HYDROCHLORIDE
     Indication: ATRIAL FIBRILLATION
     Dosage: 300 MILLIGRAM, ONCE A DAY
     Route: 042
     Dates: start: 20190529, end: 20190601
  14. ENTRESTO [Suspect]
     Active Substance: SACUBITRIL\VALSARTAN
     Indication: HYPERTROPHIC CARDIOMYOPATHY
     Dosage: 2 DOSAGE FORM, ONCE A DAY, 1-0-1
     Route: 048
     Dates: start: 20181220, end: 20190526
  15. CORTANCYL [Suspect]
     Active Substance: PREDNISONE
     Indication: PROPHYLAXIS AGAINST TRANSPLANT REJECTION
     Dosage: 50 MILLIGRAM, ONCE A DAY
     Route: 048
     Dates: start: 20190527
  16. PRAVASTATIN. [Suspect]
     Active Substance: PRAVASTATIN
     Indication: HYPERCHOLESTEROLAEMIA
     Dosage: 40 MILLIGRAM, ONCE A DAY
     Route: 065
     Dates: start: 20190527, end: 20190625
  17. VALACYCLOVIR [Suspect]
     Active Substance: VALACYCLOVIR HYDROCHLORIDE
     Indication: INFECTION PROPHYLAXIS
     Dosage: 1000 MILLIGRAM, ONCE A DAY, 1-0-1
     Route: 048
     Dates: start: 20190603
  18. CORDARONE [Suspect]
     Active Substance: AMIODARONE HYDROCHLORIDE
     Indication: ATRIAL FIBRILLATION
     Dosage: 200 MILLIGRAM, ONCE A DAY
     Route: 048
     Dates: start: 2008, end: 20190526
  19. LOVENOX [Suspect]
     Active Substance: ENOXAPARIN SODIUM
     Indication: THROMBOSIS PROPHYLAXIS
     Dosage: 8000 INTERNATIONAL UNIT, ONCE A DAY
     Route: 058
     Dates: start: 20190604, end: 20190614
  20. NEORAL [Suspect]
     Active Substance: CYCLOSPORINE
     Indication: PROPHYLAXIS AGAINST TRANSPLANT REJECTION
     Dosage: 400 MILLIGRAM, ONCE A DAY, 2-0-2
     Route: 048
     Dates: start: 20190529
  21. MYFORTIC [Suspect]
     Active Substance: MYCOPHENOLATE SODIUM
     Indication: PROPHYLAXIS AGAINST TRANSPLANT REJECTION
     Dosage: 1440 MILLIGRAM, ONCE A DAY, 720-0-720
     Route: 048
     Dates: start: 20190609, end: 20190621
  22. TAHOR [Suspect]
     Active Substance: ATORVASTATIN CALCIUM
     Indication: HYPERCHOLESTEROLAEMIA
     Dosage: 10 MILLIGRAM, ONCE A DAY
     Route: 048
     Dates: start: 201812, end: 20190526
  23. INEXIUM [Suspect]
     Active Substance: ESOMEPRAZOLE
     Indication: GASTROOESOPHAGEAL REFLUX DISEASE
     Dosage: 20 MILLIGRAM, ONCE A DAY, 1 LE SOIR
     Route: 048
     Dates: start: 20190527
  24. CELLCEPT [Suspect]
     Active Substance: MYCOPHENOLATE MOFETIL\MYCOPHENOLATE MOFETIL HYDROCHLORIDE
     Dosage: 1440 MILLIGRAM, ONCE A DAY
     Route: 048
     Dates: start: 20190609, end: 20190621
  25. HYDROCORTISONE UPJOHN [Suspect]
     Active Substance: HYDROCORTISONE
     Indication: ADRENAL INSUFFICIENCY
     Dosage: 150 MILLIGRAM, ONCE A DAY
     Route: 042
     Dates: start: 20190607
  26. LEVOTHYROX [Suspect]
     Active Substance: LEVOTHYROXINE
     Indication: HYPOTHYROIDISM
     Dosage: 106.25 MICROGRAM, ONCE A DAY
     Route: 048
     Dates: start: 2008
  27. ELIQUIS [Suspect]
     Active Substance: APIXABAN
     Indication: ATRIAL FIBRILLATION
     Dosage: 10 MILLIGRAM, ONCE A DAY, 1-0-1
     Route: 048
     Dates: start: 201812, end: 20190526
  28. ELIQUIS [Suspect]
     Active Substance: APIXABAN
     Indication: CEREBROVASCULAR ACCIDENT PROPHYLAXIS
  29. DOBUTAMINE PANPHARMA [Suspect]
     Active Substance: DOBUTAMINE HYDROCHLORIDE
     Indication: CIRCULATORY COLLAPSE
     Dosage: 7 MICROGRAM/KILOGRAM, EVERY 1 MINUTE
     Route: 042
     Dates: start: 20190527
  30. REMIFENTANIL MYLAN [Suspect]
     Active Substance: REMIFENTANIL
     Indication: SEDATION
     Dosage: 15 MICROGRAM/KILOGRAM, EVERY HOUR
     Route: 042
     Dates: start: 20190527, end: 20190530

REACTIONS (1)
  - Interstitial lung disease [Recovering/Resolving]

NARRATIVE: CASE EVENT DATE: 20190618
